FAERS Safety Report 7414496-4 (Version None)
Quarter: 2011Q2

REPORT INFORMATION
  Report Type: 
  Country: None (occurrence: None)
  Receive Date: 20110407
  Receipt Date: 20110328
  Transmission Date: 20111010
  Serious: Yes (Hospitalization)
  Sender: FDA-Public Use
  Company Number: DSJ-2011-06481

PATIENT
  Age: 35 Year
  Sex: Male

DRUGS (3)
  1. PAROXETINE (PAROXETINE) (PAROXETINE) [Concomitant]
  2. BENICAR HCT [Suspect]
     Indication: HYPERTENSION
     Dosage: 20/12.5 MG (1 IN 1 D), PER ORAL
     Route: 048
     Dates: start: 20090701, end: 20110328
  3. CARVEDILOL [Concomitant]

REACTIONS (1)
  - AORTIC VALVE REPLACEMENT [None]
